FAERS Safety Report 6131228-0 (Version None)
Quarter: 2009Q1

REPORT INFORMATION
  Report Type: 
  Country: None (occurrence: None)
  Receive Date: 20090325
  Receipt Date: 20080314
  Transmission Date: 20090719
  Serious: Yes (Life-Threatening, Other)
  Sender: FDA-Public Use
  Company Number: US-BRISTOL-MYERS SQUIBB COMPANY-13964879

PATIENT
  Age: 69 Year
  Sex: Male

DRUGS (4)
  1. ERBITUX [Suspect]
     Indication: HEAD AND NECK CANCER
     Route: 042
     Dates: start: 20071023, end: 20071023
  2. BENADRYL [Concomitant]
  3. SOLU-MEDROL [Concomitant]
  4. EPINEPHRINE [Concomitant]

REACTIONS (1)
  - INFUSION RELATED REACTION [None]
